FAERS Safety Report 4396280-1 (Version None)
Quarter: 2004Q3

REPORT INFORMATION
  Report Type: 
  Country: None (occurrence: None)
  Receive Date: 20040713
  Receipt Date: 20040126
  Transmission Date: 20050211
  Serious: Yes (Other)
  Sender: FDA-Public Use
  Company Number: US-GLAXOSMITHKLINE-A0496291A

PATIENT
  Age: 66 Year
  Sex: Female

DRUGS (5)
  1. AVANDIA [Suspect]
     Route: 048
     Dates: start: 20001206, end: 20020702
  2. GLUCOVANCE [Concomitant]
     Route: 048
     Dates: start: 20001206
  3. ACTOS [Concomitant]
  4. LASIX [Concomitant]
  5. ZOCOR [Concomitant]
     Dosage: 20MG TWICE PER DAY

REACTIONS (2)
  - CARDIAC FAILURE CONGESTIVE [None]
  - HYPERTENSION [None]
